FAERS Safety Report 4313231-6 (Version None)
Quarter: 2004Q1

REPORT INFORMATION
  Report Type: 
  Country: None (occurrence: None)
  Receive Date: 20040305
  Receipt Date: 20040217
  Transmission Date: 20041129
  Serious: Yes (Hospitalization, Other)
  Sender: FDA-Public Use
  Company Number: A-CH2003-02321

PATIENT
  Age: 49 Year
  Sex: Male
  Weight: 62 kg

DRUGS (13)
  1. TRACLEER [Suspect]
     Indication: PULMONARY HYPERTENSION
     Dosage: SEE IMAGE
     Route: 048
     Dates: start: 20021107, end: 20021204
  2. TRACLEER [Suspect]
     Indication: PULMONARY HYPERTENSION
     Dosage: SEE IMAGE
     Route: 048
     Dates: start: 20021214, end: 20021219
  3. TRACLEER [Suspect]
     Indication: PULMONARY HYPERTENSION
     Dosage: SEE IMAGE
     Route: 048
     Dates: start: 20030208, end: 20030704
  4. TRACLEER [Suspect]
     Indication: PULMONARY HYPERTENSION
     Dosage: SEE IMAGE
     Route: 048
     Dates: start: 20030710
  5. BERAPROST (BERAPROST) [Concomitant]
  6. OXYGEN (OXYGEN) [Concomitant]
  7. POTASSIUM CHLORIDE [Concomitant]
  8. LEVOTHYROXINE SODIUM [Concomitant]
  9. LASIX [Concomitant]
  10. CORDARONE [Concomitant]
  11. ALLOPURINOL [Concomitant]
  12. SINTROM [Concomitant]
  13. KARDEGIC (ACETYLSALICYLATE LYSINE) [Concomitant]

REACTIONS (8)
  - CHOLESTASIS [None]
  - CYTOLYTIC HEPATITIS [None]
  - DYSPNOEA EXACERBATED [None]
  - HEPATOMEGALY [None]
  - PRURITUS [None]
  - RIGHT VENTRICULAR FAILURE [None]
  - SUPERINFECTION LUNG [None]
  - SYNCOPE [None]
